FAERS Safety Report 24400860 (Version 1)
Quarter: 2024Q4

REPORT INFORMATION
  Report Type: Spontaneous
  Country: US (occurrence: US)
  Receive Date: 20241006
  Receipt Date: 20241006
  Transmission Date: 20250115
  Serious: Yes (Death, Hospitalization, Other)
  Sender: ADVANZ PHARMA
  Company Number: US-ADVANZ PHARMA-202409007868

PATIENT

DRUGS (4)
  1. PREDNISOLONE [Suspect]
     Active Substance: PREDNISOLONE
     Indication: Immunosuppressant drug therapy
     Dosage: 40 MG (INDUCTION THERAPY)
  2. PREDNISOLONE [Suspect]
     Active Substance: PREDNISOLONE
     Dosage: UNK (INTENSIFICATION OF IMMUNOSUPPRESSIVE THERAPY)
  3. CYCLOSPORINE [Suspect]
     Active Substance: CYCLOSPORINE
     Indication: Immunosuppressant drug therapy
     Dosage: 100 MG (INDUCTION THERAPY)
  4. CYCLOSPORINE [Suspect]
     Active Substance: CYCLOSPORINE
     Dosage: UNK (INTENSIFICATION OF IMMUNOSUPPRESSIVE THERAPY)

REACTIONS (4)
  - Aspergillus infection [Fatal]
  - Tracheobronchitis [Fatal]
  - Abdominal pain [Unknown]
  - Drug ineffective [Unknown]
